FAERS Safety Report 8443863-5 (Version None)
Quarter: 2012Q2

REPORT INFORMATION
  Report Type: 
  Country: None (occurrence: None)
  Receive Date: 20120618
  Receipt Date: 20120606
  Transmission Date: 20120825
  Serious: Yes (Life-Threatening)
  Sender: FDA-Public Use
  Company Number: NL-JNJFOC-20120604668

PATIENT
  Sex: Female
  Weight: 32.3 kg

DRUGS (2)
  1. REMICADE [Suspect]
     Indication: INFLAMMATORY BOWEL DISEASE
     Route: 042
     Dates: start: 20120605
  2. REMICADE [Suspect]
     Route: 042
     Dates: start: 20120424

REACTIONS (1)
  - ANAPHYLACTIC REACTION [None]
